FAERS Safety Report 8941133 (Version 1)
Quarter: 2012Q4

REPORT INFORMATION
  Report Type: 
  Country: US (occurrence: US)
  Receive Date: 20121203
  Receipt Date: 20121203
  Transmission Date: 20130627
  Serious: No
  Sender: FDA-Public Use
  Company Number: US-009507513-1212USA000417

PATIENT
  Age: 4 Year
  Sex: Male
  Weight: 19.48 kg

DRUGS (3)
  1. CLARITIN ORAL SOLUTION [Suspect]
     Indication: RHINORRHOEA
     Dosage: 5 mg, prn
     Route: 048
  2. CLARITIN ORAL SOLUTION [Suspect]
     Indication: LACRIMATION INCREASED
     Dosage: 5 mg, Once
     Route: 048
     Dates: start: 20121014
  3. CLARITIN ORAL SOLUTION [Suspect]
     Dosage: 5 mg, Once
     Route: 048
     Dates: start: 20121015

REACTIONS (1)
  - Overdose [Unknown]
